FAERS Safety Report 14862011 (Version 3)
Quarter: 2018Q2

REPORT INFORMATION
  Report Type: Report from Study
  Country: US (occurrence: US)
  Receive Date: 20180508
  Receipt Date: 20180605
  Transmission Date: 20180711
  Serious: Yes (Hospitalization)
  Sender: FDA-Public Use
  Company Number: US-EXELIXIS-CABO-18013856

PATIENT
  Age: 75 Year
  Sex: Male

DRUGS (5)
  1. ZETIA [Concomitant]
     Active Substance: EZETIMIBE
  2. CABOMETYX [Suspect]
     Active Substance: CABOZANTINIB S-MALATE
     Indication: RENAL CANCER
     Dosage: 60 MG, QD
     Route: 048
     Dates: start: 20180411, end: 20180428
  3. ULORIC [Concomitant]
     Active Substance: FEBUXOSTAT
  4. CRESTOR [Concomitant]
     Active Substance: ROSUVASTATIN CALCIUM
  5. BACTRIM [Concomitant]
     Active Substance: SULFAMETHOXAZOLE\TRIMETHOPRIM

REACTIONS (9)
  - Dehydration [Unknown]
  - Stomatitis [Unknown]
  - Fluid intake reduced [Unknown]
  - Thrombosis [Recovering/Resolving]
  - Hypotension [Unknown]
  - Feeding disorder [Unknown]
  - Loss of consciousness [Recovered/Resolved]
  - Ageusia [Unknown]
  - Hypertension [Unknown]

NARRATIVE: CASE EVENT DATE: 20180428
